FAERS Safety Report 5230041-6 (Version None)
Quarter: 2007Q1

REPORT INFORMATION
  Report Type: 
  Country: None (occurrence: None)
  Receive Date: 20070206
  Receipt Date: 20061002
  Transmission Date: 20070707
  Serious: No
  Sender: FDA-Public Use
  Company Number: US-GLAXOSMITHKLINE-A0622109A

PATIENT
  Age: 83 Year
  Sex: Female

DRUGS (3)
  1. PAXIL [Suspect]
     Indication: STRESS
     Dosage: 10MG PER DAY
     Route: 048
  2. ARICEPT [Concomitant]
  3. WATER PILL [Concomitant]

REACTIONS (3)
  - ASTHENIA [None]
  - ILL-DEFINED DISORDER [None]
  - TREATMENT NONCOMPLIANCE [None]
